FAERS Safety Report 16322031 (Version 2)
Quarter: 2019Q2

REPORT INFORMATION
  Report Type: Report from Study
  Country: JP (occurrence: JP)
  Receive Date: 20190516
  Receipt Date: 20190614
  Transmission Date: 20190711
  Serious: Yes (Other)
  Sender: FDA-Public Use
  Company Number: JP-BRISTOL-MYERS SQUIBB COMPANY-BMS-2019-047131

PATIENT
  Age: 58 Year
  Sex: Male

DRUGS (1)
  1. NIVOLUMAB [Suspect]
     Active Substance: NIVOLUMAB
     Indication: GASTRIC CANCER
     Dosage: UNK
     Route: 041

REACTIONS (7)
  - Malaise [Unknown]
  - Decreased appetite [Unknown]
  - Hypothalamo-pituitary disorder [Unknown]
  - Weight decreased [Unknown]
  - Hypoglycaemia [Unknown]
  - Taste disorder [Unknown]
  - Blood corticotrophin abnormal [Unknown]
